FAERS Safety Report 8955667 (Version 1)
Quarter: 2012Q4

REPORT INFORMATION
  Report Type: Report from Study
  Country: GB (occurrence: GB)
  Receive Date: 20121207
  Receipt Date: 20121207
  Transmission Date: 20130627
  Serious: Yes (Death)
  Sender: FDA-Public Use
  Company Number: GB-CELGENEUS-167-21880-12113856

PATIENT
  Age: 56 Year
  Sex: Male
  Weight: 80 kg

DRUGS (6)
  1. REVLIMID [Suspect]
     Indication: MULTIPLE MYELOMA
     Dosage: 10 Milligram
     Route: 048
     Dates: start: 20120412, end: 20120906
  2. DEXAMETHASONE [Suspect]
     Indication: MULTIPLE MYELOMA
     Dosage: 40 Milligram
     Route: 048
     Dates: start: 20120412, end: 20120906
  3. DEXAMETHASONE [Suspect]
     Dosage: 5.3333 Milligram
     Route: 048
     Dates: start: 20110914, end: 20120328
  4. VELCADE [Suspect]
     Indication: MULTIPLE MYELOMA
     Dosage: 2.4 milligram/sq. meter
     Route: 041
     Dates: start: 20110914, end: 20120328
  5. HAEMATOPOIETIC COLONY STIMULATING FACTOR [Concomitant]
     Indication: DRUG USE FOR UNKNOWN INDICATION
     Route: 065
  6. ASPIRINE [Concomitant]
     Indication: ANTICOAGULANT THERAPY
     Route: 065

REACTIONS (1)
  - Plasma cell myeloma [Fatal]
